FAERS Safety Report 7028684-2 (Version None)
Quarter: 2010Q3

REPORT INFORMATION
  Report Type: 
  Country: None (occurrence: None)
  Receive Date: 20100920
  Receipt Date: 20100119
  Transmission Date: 20110219
  Serious: Yes (Hospitalization, Other)
  Sender: FDA-Public Use
  Company Number: 2010007914

PATIENT
  Age: 11 Year
  Sex: Male

DRUGS (2)
  1. DILANTIN-125 [Suspect]
     Indication: CONVULSION
     Dosage: 100 MG, 3X/DAY, ORAL
     Route: 048
     Dates: start: 19951002
  2. DILANTIN [Suspect]
     Indication: CONVULSION
     Dosage: 200 MG, 2X/DAY, PARENTERAL
     Route: 051
     Dates: start: 19950929, end: 19950929

REACTIONS (1)
  - STEVENS-JOHNSON SYNDROME [None]
